FAERS Safety Report 7646818-3 (Version None)
Quarter: 2011Q3

REPORT INFORMATION
  Report Type: 
  Country: None (occurrence: None)
  Receive Date: 20110729
  Receipt Date: 20110729
  Transmission Date: 20111222
  Serious: Yes (Life-Threatening, Hospitalization)
  Sender: FDA-Public Use
  Company Number: None

PATIENT
  Age: 65 Year
  Sex: Male
  Weight: 86.1834 kg

DRUGS (2)
  1. NIACIN [Suspect]
     Dosage: 1000 MG. TWICE DAILY
     Dates: start: 20010101
  2. SIMVASTATIN [Suspect]
     Dosage: 80 MG. ONCE DAILY
     Dates: start: 20080101, end: 20110101

REACTIONS (2)
  - RHABDOMYOLYSIS [None]
  - RENAL DISORDER [None]
